FAERS Safety Report 14607964 (Version 2)
Quarter: 2018Q2

REPORT INFORMATION
  Report Type: Spontaneous
  Country: US (occurrence: US)
  Receive Date: 20180307
  Receipt Date: 20180525
  Transmission Date: 20180711
  Serious: Yes (Other)
  Sender: FDA-Public Use
  Company Number: US-BAYER-2018-043721

PATIENT
  Age: 28 Year
  Sex: Female
  Weight: 65.31 kg

DRUGS (4)
  1. MIRENA [Suspect]
     Active Substance: LEVONORGESTREL
     Indication: CONTRACEPTION
  2. MIRENA [Suspect]
     Active Substance: LEVONORGESTREL
     Indication: MENORRHAGIA
     Dosage: 20 MCG/24HR, CONT
     Route: 015
     Dates: start: 20141022, end: 20170715
  3. MIRENA [Suspect]
     Active Substance: LEVONORGESTREL
     Indication: MENORRHAGIA
  4. MIRENA [Suspect]
     Active Substance: LEVONORGESTREL
     Indication: CONTRACEPTION
     Dosage: 20 MCG/24HR, CONT
     Route: 015
     Dates: start: 20170809, end: 20180228

REACTIONS (7)
  - Abdominal pain lower [None]
  - Abdominal pain lower [None]
  - Back pain [None]
  - Vaginal discharge [None]
  - Genital haemorrhage [None]
  - Device expulsion [None]
  - Device expulsion [None]

NARRATIVE: CASE EVENT DATE: 20170715
